FAERS Safety Report 9108039 (Version 1)
Quarter: 2013Q1

REPORT INFORMATION
  Report Type: Spontaneous
  Country: US (occurrence: US)
  Receive Date: 20130221
  Receipt Date: 20130221
  Transmission Date: 20140127
  Serious: No
  Sender: FDA-Public Use
  Company Number: US-BIOGENIDEC-2013BI014554

PATIENT
  Age: 25 Year
  Sex: Female

DRUGS (1)
  1. TYSABRI [Suspect]
     Indication: MULTIPLE SCLEROSIS
     Route: 042
     Dates: start: 20120810

REACTIONS (7)
  - Weight increased [Not Recovered/Not Resolved]
  - Photopsia [Recovered/Resolved with Sequelae]
  - Depression [Recovered/Resolved with Sequelae]
  - Crying [Recovered/Resolved with Sequelae]
  - Sinusitis [Recovered/Resolved]
  - Asthenia [Recovered/Resolved with Sequelae]
  - Fatigue [Recovered/Resolved with Sequelae]
